FAERS Safety Report 5511096-8 (Version None)
Quarter: 2007Q4

REPORT INFORMATION
  Report Type: 
  Country: None (occurrence: None)
  Receive Date: 20071107
  Receipt Date: 20071026
  Transmission Date: 20080405
  Serious: Yes (Disabling)
  Sender: FDA-Public Use
  Company Number: GXKR2007GB09240

PATIENT
  Age: 62 Year
  Sex: Male
  Weight: 65 kg

DRUGS (2)
  1. SERTRALINE [Suspect]
     Indication: MEMORY IMPAIRMENT
     Dosage: 50 MG, QD, ORAL
     Route: 048
     Dates: start: 20060113, end: 20060114
  2. CODEINE SUL TAB [Concomitant]

REACTIONS (25)
  - ABDOMINAL DISTENSION [None]
  - ARTHRALGIA [None]
  - CHEST PAIN [None]
  - DERMATITIS ALLERGIC [None]
  - DIARRHOEA [None]
  - DRUG INEFFECTIVE [None]
  - DRY MOUTH [None]
  - DRY THROAT [None]
  - DYSPNOEA [None]
  - FALL [None]
  - GAIT DISTURBANCE [None]
  - GASTROINTESTINAL DISORDER [None]
  - GASTROOESOPHAGEAL REFLUX DISEASE [None]
  - HOT FLUSH [None]
  - HYPOAESTHESIA [None]
  - JOINT STIFFNESS [None]
  - MEMORY IMPAIRMENT [None]
  - MUSCLE SPASMS [None]
  - MYALGIA [None]
  - NAUSEA [None]
  - ODYNOPHAGIA [None]
  - PARAESTHESIA [None]
  - SENSATION OF HEAVINESS [None]
  - SKIN TIGHTNESS [None]
  - SLEEP DISORDER [None]
